FAERS Safety Report 7820218-5 (Version None)
Quarter: 2011Q4

REPORT INFORMATION
  Report Type: 
  Country: None (occurrence: None)
  Receive Date: 20111018
  Receipt Date: 20111004
  Transmission Date: 20120403
  Serious: Yes (Other)
  Sender: FDA-Public Use
  Company Number: HU-ELI_LILLY_AND_COMPANY-HU201110001911

PATIENT
  Sex: Female

DRUGS (2)
  1. ANTACID [Concomitant]
  2. TERIPARATIDE [Suspect]
     Dosage: 20 UG, QD
     Route: 058
     Dates: start: 20100501

REACTIONS (3)
  - ABDOMINAL PAIN UPPER [None]
  - WEIGHT DECREASED [None]
  - SMALL INTESTINE ULCER [None]
